FAERS Safety Report 7494794-9 (Version None)
Quarter: 2011Q2

REPORT INFORMATION
  Report Type: 
  Country: None (occurrence: None)
  Receive Date: 20110520
  Receipt Date: 20110513
  Transmission Date: 20111010
  Serious: Yes (Other)
  Sender: FDA-Public Use
  Company Number: A0923037A

PATIENT
  Sex: Male

DRUGS (2)
  1. NONE [Concomitant]
  2. AVODART [Suspect]
     Dosage: .5MG UNKNOWN
     Route: 048
     Dates: start: 20110207, end: 20110401

REACTIONS (9)
  - HELMINTHIC INFECTION [None]
  - ILL-DEFINED DISORDER [None]
  - ANAL PRURITUS [None]
  - VERTIGO [None]
  - URTICARIA [None]
  - DRUG INEFFECTIVE [None]
  - HAEMORRHOIDS [None]
  - SYNCOPE [None]
  - CEREBROVASCULAR ACCIDENT [None]
